FAERS Safety Report 23862215 (Version 5)
Quarter: 2024Q2

REPORT INFORMATION
  Report Type: Report from Study
  Country: PT (occurrence: PT)
  Receive Date: 20240516
  Receipt Date: 20240611
  Transmission Date: 20240716
  Serious: Yes (Hospitalization, Other)
  Sender: FDA-Public Use
  Company Number: PT-ABBVIE-5760121

PATIENT
  Age: 78 Year
  Sex: Male

DRUGS (10)
  1. CARBIDOPA\LEVODOPA [Suspect]
     Active Substance: CARBIDOPA\LEVODOPA
     Indication: Parkinson^s disease
     Dosage: 20 MG + 5 MG?FREQUENCY TEXT: MORN:9CC;MAIN:3.2CC/H;EXTRA:1CC
     Route: 050
     Dates: start: 20201216
  2. CARBIDOPA\LEVODOPA [Suspect]
     Active Substance: CARBIDOPA\LEVODOPA
     Dosage: 20 MG + 5 MG?FREQUENCY TEXT: MORN:14CC;MAIN:3.2CC/H;EXTRA:1CC
     Route: 050
     Dates: start: 20201215, end: 20201215
  3. CARBIDOPA\LEVODOPA [Suspect]
     Active Substance: CARBIDOPA\LEVODOPA
     Dosage: 20 MG + 5 MGMORN:13.8CC;MAIN:5.4CC/H;EXTRA:0CC
     Route: 050
     Dates: start: 202311
  4. CARBIDOPA\LEVODOPA [Suspect]
     Active Substance: CARBIDOPA\LEVODOPA
     Dosage: 20 MG + 5 MG?MORN:13.8CC;MAIN:5.4CC/H;EXTRA:0CC
     Route: 050
     Dates: start: 202311
  5. SIMVASTATIN [Concomitant]
     Active Substance: SIMVASTATIN
     Indication: Product used for unknown indication
     Dosage: START DATE TEXT: BEFORE DUODOPA
  6. MINIRIN [Concomitant]
     Active Substance: DESMOPRESSIN ACETATE
     Indication: Product used for unknown indication
     Dosage: START DATE TEXT: BEFORE DUODOPA
  7. HYDROCHLOROTHIAZIDE\LOSARTAN [Concomitant]
     Active Substance: HYDROCHLOROTHIAZIDE\LOSARTAN
     Indication: Hypertension
     Dosage: START DATE TEXT: BEFORE DUODOPA
  8. Daflon [Concomitant]
     Indication: Peripheral venous disease
     Dosage: MICRONIZED PURIFIED FLAVONOID FRACTION?START DATE TEXT: BEFORE DUODOPA
  9. LEVETIRACETAM [Concomitant]
     Active Substance: LEVETIRACETAM
     Indication: Epilepsy
     Dates: start: 20240510
  10. RIVASTIGMINE [Concomitant]
     Active Substance: RIVASTIGMINE
     Indication: Parkinson^s disease
     Dosage: START DATE TEXT: BEFORE DUODOPA

REACTIONS (15)
  - Nystagmus [Recovered/Resolved]
  - Somnolence [Not Recovered/Not Resolved]
  - Neutrophilia [Not Recovered/Not Resolved]
  - Syncope [Recovered/Resolved]
  - Altered state of consciousness [Recovered/Resolved]
  - Epilepsy [Not Recovered/Not Resolved]
  - Confusional state [Not Recovered/Not Resolved]
  - Urinary tract infection [Recovered/Resolved]
  - Investigation abnormal [Not Recovered/Not Resolved]
  - Blood creatine phosphokinase increased [Not Recovered/Not Resolved]
  - Pyrexia [Recovered/Resolved]
  - Polymerase chain reaction positive [Not Recovered/Not Resolved]
  - Cough [Recovered/Resolved]
  - Decubitus ulcer [Recovering/Resolving]
  - Hospitalisation [Recovered/Resolved]

NARRATIVE: CASE EVENT DATE: 20240501
